FAERS Safety Report 7893033-4 (Version None)
Quarter: 2011Q4

REPORT INFORMATION
  Report Type: 
  Country: None (occurrence: None)
  Receive Date: 20111104
  Receipt Date: 20111025
  Transmission Date: 20120403
  Serious: Yes (Hospitalization)
  Sender: FDA-Public Use
  Company Number: TW-BRISTOL-MYERS SQUIBB COMPANY-16193641

PATIENT
  Age: 73 Year
  Sex: Female
  Weight: 62 kg

DRUGS (11)
  1. BLINDED: PLACEBO [Suspect]
     Indication: BREAST CANCER METASTATIC
     Dosage: 10-JUL-2011 AND INTERRUPTED ON 15-JUL-2011.
     Route: 048
     Dates: start: 20110530
  2. GLUCOPHAGE [Concomitant]
     Indication: DIABETES MELLITUS
     Route: 048
     Dates: start: 20051122
  3. CRESTOR [Concomitant]
     Indication: HYPERCHOLESTEROLAEMIA
     Route: 048
     Dates: start: 20110401
  4. GLUCOBAY [Concomitant]
     Indication: DIABETES MELLITUS
     Dates: start: 20091207
  5. SIGMAXIN [Concomitant]
     Indication: HYPERTENSION
     Route: 048
     Dates: start: 20110401
  6. ASPIRIN [Concomitant]
     Route: 048
     Dates: start: 20110416
  7. NORVASC [Concomitant]
     Indication: HYPERTENSION
     Route: 048
     Dates: start: 20051120
  8. TAXOL [Suspect]
     Indication: BREAST CANCER METASTATIC
     Dosage: INTERRUPTED ON 4JUL2011
     Route: 042
     Dates: start: 20110530
  9. TRASTUZUMAB [Suspect]
     Indication: BREAST CANCER METASTATIC
     Dosage: 30MAY-30MAY11:286MG 07JUN-18JUL11:132MG. LAST DOSE:4JUL11
     Route: 042
     Dates: start: 20110530
  10. AMARYL [Concomitant]
     Indication: DIABETES MELLITUS
     Route: 048
     Dates: start: 20110101
  11. BLINDED: EVEROLIMUS [Suspect]
     Indication: BREAST CANCER METASTATIC
     Dosage: INTERRUPTED ON 10JUL2011 AND 15-JUL-2011.
     Route: 048
     Dates: start: 20110530

REACTIONS (2)
  - ULCER [None]
  - CELLULITIS [None]
